FAERS Safety Report 18767174 (Version 2)
Quarter: 2021Q1

REPORT INFORMATION
  Report Type: Spontaneous
  Country: BR (occurrence: BR)
  Receive Date: 20210121
  Receipt Date: 20210122
  Transmission Date: 20210419
  Serious: Yes (Other)
  Sender: FDA-Public Use
  Company Number: BR-PFIZER INC-2021026516

PATIENT
  Age: 38 Year
  Sex: Male
  Weight: 72 kg

DRUGS (10)
  1. RITUXIMAB. [Suspect]
     Active Substance: RITUXIMAB
     Indication: BURKITT^S LYMPHOMA STAGE IV
     Dosage: 375 MG/M2, CYCLIC (ON D1 AND D5, EVERY 21 DAYS, EPOCH?R PROTOCOL)
     Route: 042
  2. VINCRISTINE [Suspect]
     Active Substance: VINCRISTINE
     Indication: BURKITT^S LYMPHOMA STAGE IV
     Dosage: 0.7 MG/M2, CYCLIC (24?HOUR CONTINUOUS INFUSION FROM D1 TO D4, EVERY 21 DAYS, EPOCH?R PROTOCOL)
     Route: 041
  3. DOXORUBICIN HCL [Suspect]
     Active Substance: DOXORUBICIN HYDROCHLORIDE
     Indication: BURKITT^S LYMPHOMA STAGE IV
     Dosage: 10 MG/M2, CYCLIC (24?HOUR CONTINUOUS INFUSION FROM D1 TO D4, EVERY 21 DAYS, EPOCH?R PROTOCOL)
     Route: 041
  4. PREDNISONE. [Suspect]
     Active Substance: PREDNISONE
     Indication: BURKITT^S LYMPHOMA STAGE IV
     Dosage: 60 MG/M2, CYCLIC (FROM D1 TO D5, EVERY 21 DAYS, EPOCH?R PROTOCOL)
     Route: 048
  5. CYCLOPHOSPHAMIDE. [Suspect]
     Active Substance: CYCLOPHOSPHAMIDE
     Indication: BURKITT^S LYMPHOMA STAGE IV
     Dosage: 750 MG/M2, CYCLIC (ON D5, EVERY 21 DAYS, EPOCH?R PROTOCOL)
     Route: 042
  6. ETOPOSIDE. [Suspect]
     Active Substance: ETOPOSIDE
     Indication: BURKITT^S LYMPHOMA STAGE IV
     Dosage: 50 MG/M2, CYCLIC (24?HOUR CONTINUOUS INFUSION FROM D1 TO D4, EVERY 21 DAYS, EPOCH?R PROTOCOL)
     Route: 041
  7. METHOTREXATE SODIUM. [Suspect]
     Active Substance: METHOTREXATE SODIUM
     Indication: BURKITT^S LYMPHOMA STAGE IV
     Dosage: 12 MG, CYCLIC (ON D1 OF THE FIRST 3 CYCLES)
     Route: 037
  8. DOLUTEGRAVIR [Concomitant]
     Active Substance: DOLUTEGRAVIR
     Indication: HIV INFECTION
     Dosage: UNK
  9. GRANULOCYTE COLONY STIMULATING FACTOR [Concomitant]
     Active Substance: GRANULOCYTE COLONY-STIMULATING FACTOR NOS
     Dosage: 300 UG, CYCLIC (300 MCG/DAY, ALL CYCLES FROM D6 TO D15)
     Route: 058
  10. LAMIVUDINE + TENOFOVIR [Concomitant]
     Indication: HIV INFECTION
     Dosage: UNK

REACTIONS (6)
  - Thrombocytopenia [Unknown]
  - Liver disorder [Unknown]
  - Tumour lysis syndrome [Unknown]
  - Febrile neutropenia [Unknown]
  - Leukopenia [Unknown]
  - Haematotoxicity [Unknown]
